FAERS Safety Report 25150608 (Version 1)
Quarter: 2025Q2

REPORT INFORMATION
  Report Type: Report from Study
  Country: CA (occurrence: CA)
  Receive Date: 20250402
  Receipt Date: 20250402
  Transmission Date: 20250717
  Serious: Yes (Other)
  Sender: TEVA
  Company Number: CA-TEVA-VS-3286369

PATIENT
  Age: 64 Year
  Sex: Male

DRUGS (7)
  1. PREDNISONE [Suspect]
     Active Substance: PREDNISONE
     Indication: Product used for unknown indication
     Route: 065
  2. METFORMIN [Concomitant]
     Active Substance: METFORMIN HYDROCHLORIDE
     Indication: Product used for unknown indication
     Route: 065
  3. UNSPECIFIED INGREDIENT [Concomitant]
     Active Substance: UNSPECIFIED INGREDIENT
     Indication: Product used for unknown indication
     Route: 065
  4. IRBESARTAN [Concomitant]
     Active Substance: IRBESARTAN
     Indication: Product used for unknown indication
     Route: 065
  5. ROSUVASTATIN [Concomitant]
     Active Substance: ROSUVASTATIN
     Indication: Product used for unknown indication
     Route: 065
  6. HADLIMA [Suspect]
     Active Substance: ADALIMUMAB-BWWD
     Indication: Ankylosing spondylitis
     Dosage: DOSAGE FORM:SOLUTION SUBCUTANEOUS, SINGLE-DOSE AUTO-INJECTOR
     Route: 065
  7. HADLIMA [Suspect]
     Active Substance: ADALIMUMAB-BWWD
     Indication: Ankylosing spondylitis
     Route: 065

REACTIONS (5)
  - Macular oedema [Not Recovered/Not Resolved]
  - Uveitis [Not Recovered/Not Resolved]
  - Cataract [Not Recovered/Not Resolved]
  - Intraocular pressure increased [Not Recovered/Not Resolved]
  - Off label use [Not Recovered/Not Resolved]
